FAERS Safety Report 24352820 (Version 1)
Quarter: 2024Q3

REPORT INFORMATION
  Report Type: Spontaneous
  Country: US (occurrence: US)
  Receive Date: 20240923
  Receipt Date: 20240923
  Transmission Date: 20241017
  Serious: No
  Sender: ROCHE
  Company Number: US-ROCHE-3476753

PATIENT
  Age: 76 Year
  Sex: Female

DRUGS (12)
  1. HERCEPTIN [Suspect]
     Active Substance: TRASTUZUMAB
     Indication: Breast cancer female
     Route: 065
  2. TUKYSA [Suspect]
     Active Substance: TUCATINIB
     Indication: Breast cancer female
     Route: 065
  3. EVUSHELD [Concomitant]
     Active Substance: CILGAVIMAB\TIXAGEVIMAB
  4. FERRIC POLYSACCHARIDE COMPLEX [Concomitant]
     Active Substance: FERRIC POLYSACCHARIDE COMPLEX
  5. FERROUS SULFATE [Concomitant]
     Active Substance: FERROUS SULFATE
  6. LETROZOLE [Concomitant]
     Active Substance: LETROZOLE
  7. LISINOPRIL [Concomitant]
     Active Substance: LISINOPRIL
  8. OLANZAPINE [Concomitant]
     Active Substance: OLANZAPINE
  9. POLYSACCHARIDES NOS [Concomitant]
  10. PROCHLORPERAZINE [Concomitant]
     Active Substance: PROCHLORPERAZINE
  11. SYNTHROID [Concomitant]
     Active Substance: LEVOTHYROXINE SODIUM
  12. CAPECITABINE [Concomitant]
     Active Substance: CAPECITABINE
     Route: 048

REACTIONS (1)
  - Abdominal pain upper [Unknown]

NARRATIVE: CASE EVENT DATE: 20231212
